FAERS Safety Report 9129289 (Version 4)
Quarter: 2013Q2

REPORT INFORMATION
  Report Type: Report from Study
  Country: CA (occurrence: CA)
  Receive Date: 20130228
  Receipt Date: 20130606
  Transmission Date: 20140414
  Serious: Yes (Hospitalization)
  Sender: FDA-Public Use
  Company Number: CA-ROCHE-1142052

PATIENT
  Age: 56 Year
  Sex: Male
  Weight: 159 kg

DRUGS (5)
  1. RITUXAN [Suspect]
     Indication: CHRONIC LYMPHOCYTIC LEUKAEMIA
     Route: 042
     Dates: start: 20120514
  2. RITUXAN [Suspect]
     Route: 042
     Dates: start: 20120924
  3. RITUXAN [Suspect]
     Route: 042
     Dates: start: 20130207
  4. BENADRYL [Suspect]
     Indication: RESTLESSNESS
     Route: 065
  5. LEUKERAN [Concomitant]
     Route: 065

REACTIONS (8)
  - Rectal abscess [Recovered/Resolved]
  - Infection [Recovered/Resolved]
  - Oxygen saturation decreased [Unknown]
  - Sleep apnoea syndrome [Unknown]
  - Nausea [Recovered/Resolved]
  - Local swelling [Not Recovered/Not Resolved]
  - Restlessness [Unknown]
  - Somnolence [Unknown]
